FAERS Safety Report 11137384 (Version 2)
Quarter: 2015Q2

REPORT INFORMATION
  Report Type: Spontaneous
  Country: US (occurrence: US)
  Receive Date: 20150526
  Receipt Date: 20150526
  Transmission Date: 20150821
  Serious: No
  Sender: FDA-Public Use
  Company Number: US-LEO PHARMA-234378

PATIENT
  Sex: Female

DRUGS (1)
  1. PICATO [Suspect]
     Active Substance: INGENOL MEBUTATE
     Indication: ACTINIC KERATOSIS
     Route: 061
     Dates: start: 20150501, end: 20150501

REACTIONS (5)
  - Application site vesicles [Recovering/Resolving]
  - Incorrect drug administration duration [Unknown]
  - Insomnia [Recovered/Resolved]
  - Application site erosion [Recovered/Resolved]
  - Application site pain [Recovered/Resolved]
